FAERS Safety Report 22089148 (Version 8)
Quarter: 2024Q3

REPORT INFORMATION
  Report Type: Spontaneous
  Country: BE (occurrence: BE)
  Receive Date: 20230313
  Receipt Date: 20240923
  Transmission Date: 20241017
  Serious: Yes (Life-Threatening, Hospitalization, Other)
  Sender: VERTEX
  Company Number: BE-VERTEX PHARMACEUTICALS-2023-003515

PATIENT
  Age: 63 Year
  Sex: Female
  Weight: 56 kg

DRUGS (8)
  1. ELEXACAFTOR\IVACAFTOR\TEZACAFTOR [Suspect]
     Active Substance: ELEXACAFTOR\IVACAFTOR\TEZACAFTOR
     Indication: Cystic fibrosis
     Dosage: 2 TABS AM
     Route: 048
     Dates: start: 20221003, end: 20221228
  2. KALYDECO [Suspect]
     Active Substance: IVACAFTOR
     Indication: Cystic fibrosis
     Dosage: 1 TAB
     Route: 048
     Dates: start: 20221003, end: 20221228
  3. BILASTINE [Concomitant]
     Active Substance: BILASTINE
     Dosage: UNK
     Dates: start: 202011
  4. AZITHROMYCIN [Concomitant]
     Active Substance: AZITHROMYCIN
     Dosage: UNK
     Dates: start: 20200409
  5. FASENRA [Concomitant]
     Active Substance: BENRALIZUMAB
     Indication: Bronchopulmonary aspergillosis allergic
     Dosage: UNK
     Dates: start: 202106
  6. PULMOZYME [Concomitant]
     Active Substance: DORNASE ALFA
  7. MUCOCLEAR [Concomitant]
  8. FLUTICASONE FUROATE\VILANTEROL TRIFENATATE [Concomitant]
     Active Substance: FLUTICASONE FUROATE\VILANTEROL TRIFENATATE

REACTIONS (6)
  - Acute hepatic failure [Recovering/Resolving]
  - Autoimmune hepatitis [Recovering/Resolving]
  - Liver transplant [Recovering/Resolving]
  - Hepatic encephalopathy [Recovering/Resolving]
  - Drug-induced liver injury [Recovering/Resolving]
  - Haemangioma [Unknown]

NARRATIVE: CASE EVENT DATE: 20221227
